FAERS Safety Report 18578475 (Version 1)
Quarter: 2020Q4

REPORT INFORMATION
  Report Type: Report from Study
  Country: US (occurrence: US)
  Receive Date: 20201204
  Receipt Date: 20201204
  Transmission Date: 20210114
  Serious: Yes (Death)
  Sender: FDA-Public Use
  Company Number: US-ASTRAZENECA-2020SF61262

PATIENT
  Age: 71 Year
  Sex: Male

DRUGS (17)
  1. CALQUENCE [Suspect]
     Active Substance: ACALABRUTINIB
     Route: 048
     Dates: start: 20200811
  2. DAPSONE. [Concomitant]
     Active Substance: DAPSONE
  3. MULTIVITAMIN MENS [Concomitant]
  4. VITAMIN B12 [Concomitant]
     Active Substance: CYANOCOBALAMIN
  5. CREON [Concomitant]
     Active Substance: PANCRELIPASE AMYLASE\PANCRELIPASE LIPASE\PANCRELIPASE PROTEASE
  6. IRON [Concomitant]
     Active Substance: IRON
  7. METOPROLOL. [Suspect]
     Active Substance: METOPROLOL
     Route: 065
  8. ACYCLOVIR. [Concomitant]
     Active Substance: ACYCLOVIR
  9. GLIMEPIRIDE. [Concomitant]
     Active Substance: GLIMEPIRIDE
  10. ATORVASTATIN [Concomitant]
     Active Substance: ATORVASTATIN
  11. BUMETADINE [Concomitant]
     Active Substance: BUMETANIDE
  12. CALCIUM [Concomitant]
     Active Substance: CALCIUM
  13. VITAMIN D [Concomitant]
     Active Substance: VITAMIN D NOS
  14. ONDANSETRON [Concomitant]
     Active Substance: ONDANSETRON
  15. ALLOPURINOL. [Concomitant]
     Active Substance: ALLOPURINOL
  16. PROCHLORPERAZINE. [Concomitant]
     Active Substance: PROCHLORPERAZINE
  17. TOVIAZ [Concomitant]
     Active Substance: FESOTERODINE FUMARATE

REACTIONS (1)
  - Death [Fatal]
